FAERS Safety Report 7693825-0 (Version None)
Quarter: 2011Q3

REPORT INFORMATION
  Report Type: 
  Country: None (occurrence: None)
  Receive Date: 20110819
  Receipt Date: 20110617
  Transmission Date: 20111222
  Serious: No
  Sender: FDA-Public Use
  Company Number: US-ALLERGAN-1108278US

PATIENT
  Age: 51 Year
  Sex: Female

DRUGS (3)
  1. REFRESH TEARS [Concomitant]
     Indication: EYE PRURITUS
     Dosage: UNK
     Route: 047
  2. LASTACAFT [Suspect]
     Indication: EYE ALLERGY
     Dosage: 2 GTT, SINGLE
     Route: 047
     Dates: start: 20110612, end: 20110612
  3. CLARITIN [Concomitant]
     Indication: SEASONAL ALLERGY
     Dosage: UNK
     Route: 048

REACTIONS (4)
  - EYE PAIN [None]
  - OCULAR HYPERAEMIA [None]
  - EYE DISORDER [None]
  - ASTHENOPIA [None]
